FAERS Safety Report 24266391 (Version 3)
Quarter: 2024Q4

REPORT INFORMATION
  Report Type: Spontaneous
  Country: JP (occurrence: JP)
  Receive Date: 20240830
  Receipt Date: 20241220
  Transmission Date: 20250114
  Serious: Yes (Other)
  Sender: ASTELLAS
  Company Number: JP-ASTELLAS-2024-AER-000797

PATIENT
  Age: 74 Year
  Sex: Female

DRUGS (4)
  1. XOSPATA [Interacting]
     Active Substance: GILTERITINIB
     Indication: Acute myeloid leukaemia
     Route: 048
     Dates: start: 20240801, end: 20240810
  2. XOSPATA [Interacting]
     Active Substance: GILTERITINIB
     Dosage: 7 TABLETS
     Route: 048
  3. XOSPATA [Interacting]
     Active Substance: GILTERITINIB
     Route: 048
     Dates: start: 20241016
  4. NOXAFIL [Interacting]
     Active Substance: POSACONAZOLE
     Indication: Product used for unknown indication
     Route: 065

REACTIONS (3)
  - Haematochezia [Recovered/Resolved]
  - Labelled drug-drug interaction issue [Unknown]
  - Off label use [Unknown]

NARRATIVE: CASE EVENT DATE: 20240810
